FAERS Safety Report 4582115-0 (Version None)
Quarter: 2005Q1

REPORT INFORMATION
  Report Type: 
  Country: None (occurrence: None)
  Receive Date: 20050119
  Receipt Date: 20040105
  Transmission Date: 20050727
  Serious: Yes (Other)
  Sender: FDA-Public Use
  Company Number: A03200400027

PATIENT
  Age: 67 Year
  Sex: Male
  Weight: 89.3586 kg

DRUGS (7)
  1. PLAVIX [Suspect]
     Indication: STENT PLACEMENT
     Dosage: 75 MG QD - ORAL
     Route: 048
     Dates: start: 20030901
  2. CILOSTAZOL [Concomitant]
  3. DILTIAZEM HYDROCHLORIDE [Concomitant]
  4. CAPTOPRIL [Concomitant]
  5. ATENOLOL [Concomitant]
  6. HYDROCHLOROTHIAZIDE [Concomitant]
  7. PRAVASTATIN SODIUM [Concomitant]

REACTIONS (1)
  - HAEMOPTYSIS [None]
